FAERS Safety Report 4654095-0 (Version None)
Quarter: 2005Q2

REPORT INFORMATION
  Report Type: 
  Country: None (occurrence: None)
  Receive Date: 20050504
  Receipt Date: 20050427
  Transmission Date: 20051028
  Serious: Yes (Hospitalization)
  Sender: FDA-Public Use
  Company Number: 200510277BFR

PATIENT
  Age: 73 Year
  Sex: Male

DRUGS (5)
  1. ASPRO (ACETYLSALICYLIC ACID) [Suspect]
     Indication: SCIATICA
     Dosage: SEE IMAGE
     Route: 048
     Dates: start: 20050224, end: 20050301
  2. ASPRO (ACETYLSALICYLIC ACID) [Suspect]
     Indication: SCIATICA
     Dosage: SEE IMAGE
     Route: 048
     Dates: start: 20050310
  3. CHRONDALATE (NIFEDIPINE) [Suspect]
     Indication: ESSENTIAL HYPERTENSION
     Dosage: 30 MG, ORAL
     Route: 048
  4. LANZOR [Concomitant]
  5. LAROXYL [Concomitant]

REACTIONS (3)
  - PLATELET COUNT DECREASED [None]
  - PURPURA [None]
  - SCIATICA [None]
